FAERS Safety Report 7654201-X (Version None)
Quarter: 2011Q3

REPORT INFORMATION
  Report Type: 
  Country: None (occurrence: None)
  Receive Date: 20110803
  Receipt Date: 20110726
  Transmission Date: 20111222
  Serious: Yes (Other)
  Sender: FDA-Public Use
  Company Number: US-ABBOTT-11P-163-0836104-00

PATIENT
  Sex: Female
  Weight: 85.806 kg

DRUGS (2)
  1. HUMIRA [Suspect]
     Indication: PSORIASIS
     Dosage: NOT AVAILABLE LOT # AND EXPIRATION.
     Route: 058
     Dates: start: 20091001, end: 20110607
  2. ULTRAVATE [Concomitant]
     Indication: PSORIASIS
     Route: 061

REACTIONS (8)
  - URINARY INCONTINENCE [None]
  - ANXIETY [None]
  - RASH [None]
  - LYMPHADENOPATHY [None]
  - HOT FLUSH [None]
  - VULVAL CANCER [None]
  - ABDOMINAL DISTENSION [None]
  - ABDOMINAL PAIN [None]
